FAERS Safety Report 8729409 (Version 5)
Quarter: 2013Q1

REPORT INFORMATION
  Report Type: Spontaneous
  Country: US (occurrence: US)
  Receive Date: 20120817
  Receipt Date: 20130115
  Transmission Date: 20140127
  Serious: No
  Sender: FDA-Public Use
  Company Number: US-PFIZER INC-2012197548

PATIENT
  Age: 69 Year
  Sex: Male
  Weight: 74.83 kg

DRUGS (8)
  1. SUTENT [Suspect]
     Indication: METASTATIC RENAL CELL CARCINOMA
     Dosage: 50 MG, 1X/DAY
     Dates: start: 20120727
  2. HYDROCHLOROTHIAZIDE\LISINOPRIL [Suspect]
     Indication: HYPERTENSION
     Dosage: 20/12.5 MG, DAILY
  3. LORTAB [Concomitant]
     Dosage: (7.5/500) AS NEEDED
  4. OXYCODONE [Concomitant]
     Dosage: 10 MG ONE HALF TAB AS NEEDED
  5. MIRALAX [Concomitant]
     Indication: CONSTIPATION
     Dosage: UNK, AS NEEDED
  6. ONDANSETRON [Concomitant]
     Dosage: UNK, AS NEEDED
  7. ALPRAZOLAM [Concomitant]
     Dosage: 0.25 MG, AS NEEDED
  8. ASPIRIN [Concomitant]
     Dosage: 81 MG, UNK

REACTIONS (20)
  - Decreased appetite [Not Recovered/Not Resolved]
  - Fatigue [Not Recovered/Not Resolved]
  - Chromaturia [Not Recovered/Not Resolved]
  - Pain of skin [Not Recovered/Not Resolved]
  - Dizziness [Not Recovered/Not Resolved]
  - Product quality issue [Not Recovered/Not Resolved]
  - Weight decreased [Recovering/Resolving]
  - Erythema [Not Recovered/Not Resolved]
  - Skin exfoliation [Unknown]
  - Dysgeusia [Unknown]
  - Musculoskeletal discomfort [Unknown]
  - Erythema [Unknown]
  - Back pain [Unknown]
  - Skin infection [Recovered/Resolved]
  - Blood cholesterol increased [Unknown]
  - Platelet count decreased [Unknown]
  - Rash [Unknown]
  - Dry skin [Unknown]
  - Gait disturbance [Unknown]
  - Genital rash [Unknown]
